FAERS Safety Report 4584101-3 (Version None)
Quarter: 2005Q1

REPORT INFORMATION
  Report Type: 
  Country: None (occurrence: None)
  Receive Date: 20050125
  Receipt Date: 20041029
  Transmission Date: 20050727
  Serious: No
  Sender: FDA-Public Use
  Company Number: USA041182821

PATIENT
  Age: 60 Year
  Sex: Female

DRUGS (2)
  1. FORTEO [Suspect]
     Indication: OSTEOPOROSIS
     Dates: start: 20041022
  2. CALCIUM GLUCONATE [Concomitant]

REACTIONS (5)
  - BLADDER PAIN [None]
  - DIARRHOEA [None]
  - NAUSEA [None]
  - STOMACH DISCOMFORT [None]
  - URINE ODOUR ABNORMAL [None]
